FAERS Safety Report 9154168 (Version 1)
Quarter: 2013Q1

REPORT INFORMATION
  Report Type: Spontaneous
  Country: US (occurrence: US)
  Receive Date: 20130311
  Receipt Date: 20130311
  Transmission Date: 20140127
  Serious: Yes (Other)
  Sender: FDA-Public Use
  Company Number: US-BRISTOL-MYERS SQUIBB COMPANY-17434119

PATIENT
  Sex: Male

DRUGS (2)
  1. ERBITUX [Suspect]
  2. IRINOTECAN [Suspect]

REACTIONS (2)
  - Genital erythema [Unknown]
  - Penile swelling [Unknown]
